FAERS Safety Report 7368427-6 (Version None)
Quarter: 2011Q1

REPORT INFORMATION
  Report Type: 
  Country: None (occurrence: None)
  Receive Date: 20110311
  Receipt Date: 20110225
  Transmission Date: 20110831
  Serious: Yes (Hospitalization)
  Sender: FDA-Public Use
  Company Number: 2011MA001851

PATIENT
  Age: 10 Year
  Sex: Male

DRUGS (1)
  1. SULFATRIM PEDIATRIC [Suspect]
     Indication: ACUTE LYMPHOCYTIC LEUKAEMIA
     Dosage: PO
     Route: 048

REACTIONS (3)
  - ANAEMIA HAEMOLYTIC AUTOIMMUNE [None]
  - DIZZINESS [None]
  - BODY TEMPERATURE INCREASED [None]
